FAERS Safety Report 4299164-2 (Version None)
Quarter: 2004Q1

REPORT INFORMATION
  Report Type: 
  Country: None (occurrence: None)
  Receive Date: 20040217
  Receipt Date: 20040130
  Transmission Date: 20041129
  Serious: Yes (Death, Other)
  Sender: FDA-Public Use
  Company Number: 2004001634

PATIENT
  Age: 68 Year
  Sex: Female

DRUGS (9)
  1. GEODON [Suspect]
     Indication: ILL-DEFINED DISORDER
     Dosage: 20 MG, INTRAMUSCULAR
     Route: 030
     Dates: start: 20030901, end: 20030901
  2. OLANZAPINE [Concomitant]
  3. HALOPERIDOL [Concomitant]
  4. OXCARBAZEPINE (OXCARBAZEPINE) [Concomitant]
  5. VALPROATE SODIUM [Concomitant]
  6. LITHIUM CARBONATE [Concomitant]
  7. TOPIRAMATE [Concomitant]
  8. ALL OTHER THERAPEUTIC PRODUCTS [Concomitant]
  9. DROPERIDOL [Concomitant]

REACTIONS (10)
  - AGITATION [None]
  - ATRIOVENTRICULAR BLOCK FIRST DEGREE [None]
  - BUNDLE BRANCH BLOCK LEFT [None]
  - EJECTION FRACTION DECREASED [None]
  - MITRAL VALVE INCOMPETENCE [None]
  - MITRAL VALVE STENOSIS [None]
  - MYOCARDIAL INFARCTION [None]
  - SYNCOPE [None]
  - UROSEPSIS [None]
  - WATER INTOXICATION [None]
